FAERS Safety Report 19941608 (Version 1)
Quarter: 2021Q4

REPORT INFORMATION
  Report Type: Spontaneous
  Country: US (occurrence: US)
  Receive Date: 20211011
  Receipt Date: 20211011
  Transmission Date: 20220303
  Serious: No
  Sender: FDA-Public Use
  Company Number: US-JAZZ-2021-US-016979

PATIENT
  Sex: Male
  Weight: 98.87 kg

DRUGS (2)
  1. SUNOSI [Suspect]
     Active Substance: SOLRIAMFETOL
     Indication: Narcolepsy
     Dosage: 75 MILLIGRAM
     Route: 048
     Dates: start: 20210809
  2. SUNOSI [Suspect]
     Active Substance: SOLRIAMFETOL
     Indication: Somnolence
     Dosage: 150 MILLIGRAM
     Dates: end: 20210823

REACTIONS (3)
  - Anxiety [Unknown]
  - Drug ineffective [Unknown]
  - Wrong technique in product usage process [Unknown]
